FAERS Safety Report 5723210-X (Version None)
Quarter: 2008Q2

REPORT INFORMATION
  Report Type: 
  Country: None (occurrence: None)
  Receive Date: 20080425
  Receipt Date: 20080409
  Transmission Date: 20081010
  Serious: Yes (Hospitalization, Disabling)
  Sender: FDA-Public Use
  Company Number: 8030641

PATIENT
  Age: 67 Year
  Sex: Male
  Weight: 85 kg

DRUGS (4)
  1. KEPPRA [Suspect]
     Indication: EPILEPSY
     Dosage: 0.5 G 2/D PO
     Route: 048
     Dates: start: 20070301, end: 20080109
  2. MODOPAR [Concomitant]
  3. URBANYL [Concomitant]
  4. LAMICTAL [Concomitant]

REACTIONS (5)
  - DEMENTIA WITH LEWY BODIES [None]
  - DEPRESSION [None]
  - DISTURBANCE IN ATTENTION [None]
  - HALLUCINATIONS, MIXED [None]
  - PARKINSONISM [None]
